FAERS Safety Report 19931252 (Version 1)
Quarter: 2021Q4

REPORT INFORMATION
  Report Type: Spontaneous
  Country: CZ (occurrence: CZ)
  Receive Date: 20211008
  Receipt Date: 20211008
  Transmission Date: 20220303
  Serious: Yes (Other)
  Sender: FDA-Public Use
  Company Number: CZ-MYLANLABS-2021M1022915

PATIENT
  Age: 48 Year
  Sex: Female

DRUGS (17)
  1. IBUPROFEN [Suspect]
     Active Substance: IBUPROFEN
     Indication: Migraine
     Dosage: 800 MILLIGRAM, ONCE A DAY (400 MILLIGRAM, BID, 8-10 DAYS IN MONTH )
     Route: 065
  2. PREGABALIN [Suspect]
     Active Substance: PREGABALIN
     Indication: Migraine
     Dosage: 100 MILLIGRAM, ONCE A DAY
     Route: 048
  3. PREGABALIN [Suspect]
     Active Substance: PREGABALIN
     Dosage: 300 MILLIGRAM, ONCE A DAY
     Route: 048
  4. SUMATRIPTAN [Suspect]
     Active Substance: SUMATRIPTAN
     Indication: Migraine
     Dosage: 50 MILLIGRAM, ONCE A DAY (50 MILLIGRAM, QD, OVER 22 DAYS IN MONTH)
     Route: 048
  5. SUMATRIPTAN [Suspect]
     Active Substance: SUMATRIPTAN
     Dosage: 100 MILLIGRAM, ONCE A DAY
     Route: 048
  6. TOPIRAMATE [Suspect]
     Active Substance: TOPIRAMATE
     Indication: Migraine
     Dosage: 75 MILLIGRAM, ONCE A DAY (25 MILLIGRAM, TID)
     Route: 048
  7. TOPIRAMATE [Suspect]
     Active Substance: TOPIRAMATE
     Dosage: 100 MILLIGRAM, ONCE A DAY
     Route: 048
  8. VALPROIC ACID [Suspect]
     Active Substance: VALPROIC ACID
     Indication: Migraine
     Dosage: 100 MILLIGRAM, ONCE A DAY
     Route: 048
  9. VALPROIC ACID [Suspect]
     Active Substance: VALPROIC ACID
     Dosage: 800 MILLIGRAM, ONCE A DAY
     Route: 048
  10. VENLAFAXINE [Suspect]
     Active Substance: VENLAFAXINE HYDROCHLORIDE
     Indication: Migraine
     Dosage: 150 MILLIGRAM, ONCE A DAY
     Route: 048
  11. VENLAFAXINE [Suspect]
     Active Substance: VENLAFAXINE HYDROCHLORIDE
     Dosage: 100 MILLIGRAM, ONCE A DAY
     Route: 048
  12. VALPROATE [Concomitant]
     Active Substance: VALPROIC ACID
     Indication: Migraine
     Dosage: 800 MILLIGRAM, ONCE A DAY (400 MG, BID )
     Route: 065
  13. VENLAFAXINE [Concomitant]
     Active Substance: VENLAFAXINE HYDROCHLORIDE
     Indication: Migraine
     Dosage: 150 MILLIGRAM, ONCE A DAY
     Route: 065
  14. CINNARIZINE [Concomitant]
     Active Substance: CINNARIZINE
     Indication: Rash
     Dosage: 75 MILLIGRAM, ONCE A DAY
     Route: 065
  15. IBUPROFEN [Concomitant]
     Active Substance: IBUPROFEN
     Indication: Migraine
     Dosage: 800 MILLIGRAM, ONCE A DAY(400 MG, BID (8 TO 10 DAYS IN MONTH) )
     Route: 065
  16. PREGABALIN [Concomitant]
     Active Substance: PREGABALIN
     Indication: Migraine
     Dosage: 300 MILLIGRAM, ONCE A DAY(150 MG, BID)
     Route: 065
  17. TOPIRAMATE [Concomitant]
     Active Substance: TOPIRAMATE
     Indication: Migraine
     Dosage: 25 MILLIGRAM
     Route: 065

REACTIONS (8)
  - Migraine without aura [Recovered/Resolved]
  - Fatigue [Recovered/Resolved]
  - Injection site mass [Recovered/Resolved]
  - Medication overuse headache [Recovered/Resolved]
  - Drug ineffective [Unknown]
  - Drug intolerance [Unknown]
  - Product use issue [Unknown]
  - Therapeutic product effect incomplete [Unknown]
